FAERS Safety Report 15385748 (Version 2)
Quarter: 2018Q4

REPORT INFORMATION
  Report Type: Spontaneous
  Country: US (occurrence: US)
  Receive Date: 20180914
  Receipt Date: 20181019
  Transmission Date: 20190204
  Serious: Yes (Hospitalization)
  Sender: FDA-Public Use
  Company Number: US-ELI_LILLY_AND_COMPANY-US201809001473

PATIENT
  Age: 34 Year
  Sex: Male

DRUGS (4)
  1. SELENIUM SULFIDE. [Concomitant]
     Active Substance: SELENIUM SULFIDE
     Indication: PRODUCT USED FOR UNKNOWN INDICATION
  2. VITAMIN D [Concomitant]
     Active Substance: CHOLECALCIFEROL
     Indication: PRODUCT USED FOR UNKNOWN INDICATION
  3. NICORAL                            /00165401/ [Concomitant]
     Indication: PRODUCT USED FOR UNKNOWN INDICATION
  4. TALTZ [Suspect]
     Active Substance: IXEKIZUMAB
     Indication: PRODUCT USED FOR UNKNOWN INDICATION
     Dosage: 80 MG, OTHER (EVERY 4 WEEKS)
     Route: 058
     Dates: start: 2016

REACTIONS (1)
  - Streptococcal infection [Unknown]
